FAERS Safety Report 6083258-5 (Version None)
Quarter: 2009Q1

REPORT INFORMATION
  Report Type: 
  Country: None (occurrence: None)
  Receive Date: 20090213
  Receipt Date: 20090213
  Transmission Date: 20090719
  Serious: Yes (Hospitalization)
  Sender: FDA-Public Use
  Company Number: None

PATIENT
  Sex: Female

DRUGS (5)
  1. YAZ [Suspect]
     Indication: MENSTRUATION IRREGULAR
     Dosage: 1 TAB ONCE DAILY PO
     Route: 048
  2. RISPERDAL [Concomitant]
  3. LYRICA [Concomitant]
  4. EFFEXOR [Concomitant]
  5. ATIVAN [Concomitant]

REACTIONS (1)
  - PULMONARY EMBOLISM [None]
